FAERS Safety Report 25547770 (Version 11)
Quarter: 2025Q4

REPORT INFORMATION
  Report Type: Spontaneous
  Country: EU (occurrence: EU)
  Receive Date: 20250714
  Receipt Date: 20251211
  Transmission Date: 20260118
  Serious: Yes (Other)
  Sender: BIOVITRUM
  Company Number: EU-BIOVITRUM-2025-FR-004154

PATIENT
  Age: 43 Year
  Sex: Female

DRUGS (19)
  1. GAMIFANT [Suspect]
     Active Substance: EMAPALUMAB-LZSG
     Indication: Haemophagocytic lymphohistiocytosis
     Dosage: 5 MG/ML
     Dates: start: 20250323
  2. GAMIFANT [Suspect]
     Active Substance: EMAPALUMAB-LZSG
     Indication: Bone marrow transplant
     Dosage: 5.3 MG/KG INSTEAD OF THE PLANNED 6 MG/KG
     Dates: end: 20250403
  3. GAMIFANT [Suspect]
     Active Substance: EMAPALUMAB-LZSG
     Dosage: DOSAGE INCREASE TO 6 MG/KG HAD BEEN APPROVED FOR THE PATIENT FOR ONE WEEK ?6 MG/KG 2 TIMES A WEEK
  4. GAMIFANT [Suspect]
     Active Substance: EMAPALUMAB-LZSG
     Dosage: 6 MG/KG 2 INJECTION A WEEK
  5. GAMIFANT [Suspect]
     Active Substance: EMAPALUMAB-LZSG
     Dosage: 6 MG/KG EVERY 2 WEEKS
  6. GAMIFANT [Suspect]
     Active Substance: EMAPALUMAB-LZSG
     Dosage: EVERY 3 DAYS
  7. GAMIFANT [Suspect]
     Active Substance: EMAPALUMAB-LZSG
     Dosage: TWICE A WEEK (WEDNESDAYS AND SUNDAYS)
     Route: 042
     Dates: start: 20250706
  8. GAMIFANT [Suspect]
     Active Substance: EMAPALUMAB-LZSG
     Dates: start: 20250703
  9. GAMIFANT [Suspect]
     Active Substance: EMAPALUMAB-LZSG
  10. GAMIFANT [Suspect]
     Active Substance: EMAPALUMAB-LZSG
     Dosage: 350 MG
     Dates: start: 20250403
  11. GAMIFANT [Suspect]
     Active Substance: EMAPALUMAB-LZSG
     Dosage: TWICE A WEEK
  12. GAMIFANT [Suspect]
     Active Substance: EMAPALUMAB-LZSG
     Dosage: 210 MG (3 MG/KG)
     Dates: start: 20250905
  13. GAMIFANT [Suspect]
     Active Substance: EMAPALUMAB-LZSG
     Dosage: 210 MG (3 MG/KG)
     Dates: start: 20250909
  14. GAMIFANT [Suspect]
     Active Substance: EMAPALUMAB-LZSG
     Dosage: 210 MG (3 MG/KG)
     Dates: start: 20250912
  15. GAMIFANT [Suspect]
     Active Substance: EMAPALUMAB-LZSG
     Dosage: 350 MG (5 MG/KG)
     Dates: start: 20250902
  16. GAMIFANT [Suspect]
     Active Substance: EMAPALUMAB-LZSG
     Dosage: 210 MG (3 MG/KG)
     Dates: start: 20250916
  17. GAMIFANT [Suspect]
     Active Substance: EMAPALUMAB-LZSG
     Dosage: TWICE A WEEK, TWICE WEEKLY
     Route: 042
     Dates: start: 20250919
  18. DEXAMETHASONE [Concomitant]
     Active Substance: DEXAMETHASONE
     Indication: Product used for unknown indication
     Dosage: 20 X 2 PER DAY
  19. PREDNISONE [Concomitant]
     Active Substance: PREDNISONE
     Indication: Product used for unknown indication

REACTIONS (13)
  - Intentional product use issue [Unknown]
  - Blood triglycerides abnormal [Not Recovered/Not Resolved]
  - White blood cell count abnormal [Unknown]
  - Blood fibrinogen abnormal [Recovered/Resolved]
  - Confusional state [Recovered/Resolved]
  - Bedridden [Recovered/Resolved]
  - Haemophagocytic lymphohistiocytosis [Unknown]
  - Condition aggravated [Unknown]
  - Aplastic anaemia [Recovering/Resolving]
  - Weight increased [Unknown]
  - Epiglottitis [Recovering/Resolving]
  - Haemoglobin decreased [Recovered/Resolved]
  - Platelet count decreased [Not Recovered/Not Resolved]
